FAERS Safety Report 9179400 (Version 1)
Quarter: 2012Q4

REPORT INFORMATION
  Report Type: 
  Country: US (occurrence: US)
  Receive Date: 20121029
  Receipt Date: 20121029
  Transmission Date: 20130627
  Serious: No
  Sender: FDA-Public Use
  Company Number: US-MYLANLABS-2012S1011336

PATIENT
  Age: 58 Year
  Sex: Male

DRUGS (1)
  1. ETOPOSIDE [Suspect]
     Route: 048

REACTIONS (3)
  - Accidental exposure to product [Not Recovered/Not Resolved]
  - Cough [Not Recovered/Not Resolved]
  - Increased upper airway secretion [Not Recovered/Not Resolved]
